FAERS Safety Report 20578358 (Version 1)
Quarter: 2022Q1

REPORT INFORMATION
  Report Type: Spontaneous
  Country: US (occurrence: None)
  Receive Date: 20220310
  Receipt Date: 20220310
  Transmission Date: 20220423
  Serious: Yes (Death, Hospitalization)
  Sender: FDA-Public Use
  Company Number: None

PATIENT
  Age: 26 Year
  Sex: Female

DRUGS (17)
  1. ENVARSUS XR [Suspect]
     Active Substance: TACROLIMUS
     Indication: Prophylaxis against transplant rejection
     Dosage: FREQUENCY : DAILY;?
     Route: 048
     Dates: start: 20200530, end: 20220214
  2. MYCOPHENOLIC ACID [Suspect]
     Active Substance: MYCOPHENOLIC ACID
     Indication: Prophylaxis against transplant rejection
     Dosage: FREQUENCY : TWICE A DAY;?
     Route: 048
     Dates: start: 20200806, end: 20220214
  3. Acetaminophen 325mg [Concomitant]
  4. Bisacodyl 5mg EC tablets [Concomitant]
  5. Emtricitabine/Tenofovir 200-300mg [Concomitant]
  6. ENVARSUS XR [Concomitant]
     Active Substance: TACROLIMUS
  7. FERROUS SULFATE [Concomitant]
     Active Substance: FERROUS SULFATE
  8. Humulin N U-100 Kwikpen [Concomitant]
  9. Lisinopril 5mg tablet [Concomitant]
  10. Metolazone 2.5mg tablets [Concomitant]
  11. Metoprolol Succinate 50mg tablet [Concomitant]
  12. PRAVASTATIN [Concomitant]
     Active Substance: PRAVASTATIN
  13. Prednisone 5mg tablet [Concomitant]
  14. SERTRALINE HYDROCHLORIDE [Concomitant]
     Active Substance: SERTRALINE HYDROCHLORIDE
  15. Bactrim 400-80mg tablet [Concomitant]
  16. VALACYCLOVIR HYDROCHLORIDE [Concomitant]
     Active Substance: VALACYCLOVIR HYDROCHLORIDE
  17. Zolpidem 10mg tablet [Concomitant]

REACTIONS (1)
  - Cardiac arrest [None]

NARRATIVE: CASE EVENT DATE: 20220214
